FAERS Safety Report 7731692-7 (Version None)
Quarter: 2011Q3

REPORT INFORMATION
  Report Type: 
  Country: None (occurrence: None)
  Receive Date: 20110906
  Receipt Date: 20110622
  Transmission Date: 20111222
  Serious: No
  Sender: FDA-Public Use
  Company Number: US-AMGEN-USASP2011031970

PATIENT
  Age: 69 Year
  Sex: Female

DRUGS (11)
  1. FOLIC ACID [Concomitant]
     Dosage: UNK
  2. PROLIA [Suspect]
     Indication: OSTEOPOROSIS POSTMENOPAUSAL
     Dosage: 60 MG, Q6MO
     Dates: start: 20110526
  3. PROMETHAZINE [Concomitant]
  4. TRAVATAN [Concomitant]
     Dosage: UNK
     Route: 047
  5. VITAMIN D [Concomitant]
  6. VITAMIN B12                        /00056201/ [Concomitant]
  7. PREDNISONE [Concomitant]
  8. METHOTREXATE [Concomitant]
     Dosage: 2.5 MG, 6 TIMES/WK
  9. ASPIRIN [Concomitant]
  10. VITAMINS                           /00067501/ [Concomitant]
     Dosage: UNK
  11. TUMS                               /00108001/ [Concomitant]
     Dosage: UNK

REACTIONS (1)
  - INFLUENZA LIKE ILLNESS [None]
